FAERS Safety Report 7358581-4 (Version None)
Quarter: 2011Q1

REPORT INFORMATION
  Report Type: 
  Country: None (occurrence: None)
  Receive Date: 20110317
  Receipt Date: 20110303
  Transmission Date: 20110831
  Serious: Yes (Death, Congenital Anomaly)
  Sender: FDA-Public Use
  Company Number: TR-WATSON-2011-03352

PATIENT
  Sex: Female

DRUGS (1)
  1. DIVALPROEX SODIUM [Suspect]
     Indication: DRUG EXPOSURE DURING PREGNANCY
     Dosage: UNK
     Route: 064

REACTIONS (20)
  - CRANIOSYNOSTOSIS [None]
  - ATRIAL SEPTAL DEFECT [None]
  - EBSTEIN'S ANOMALY [None]
  - CONGENITAL ANOMALY [None]
  - MICROGNATHIA [None]
  - CAMPTODACTYLY CONGENITAL [None]
  - TENDINOUS CONTRACTURE [None]
  - CONGENITAL NOSE MALFORMATION [None]
  - PECTUS EXCAVATUM [None]
  - COARCTATION OF THE AORTA [None]
  - OPTIC NERVE HYPOPLASIA [None]
  - MULTIPLE CARDIAC DEFECTS [None]
  - RIGHT VENTRICULAR HYPERTROPHY [None]
  - HYDROCEPHALUS [None]
  - MICROPHTHALMOS [None]
  - ARACHNODACTYLY [None]
  - RESPIRATORY FAILURE [None]
  - CONGENITAL CYSTIC KIDNEY DISEASE [None]
  - PULMONARY VALVE STENOSIS [None]
  - EAR MALFORMATION [None]
